FAERS Safety Report 15996524 (Version 1)
Quarter: 2019Q1

REPORT INFORMATION
  Report Type: Spontaneous
  Country: US (occurrence: US)
  Receive Date: 20190222
  Receipt Date: 20190222
  Transmission Date: 20190418
  Serious: Yes (Other)
  Sender: FDA-Public Use
  Company Number: None

PATIENT
  Age: 67 Year
  Sex: Male
  Weight: 74.7 kg

DRUGS (5)
  1. ASPIRIN. [Concomitant]
     Active Substance: ASPIRIN
  2. DOXAZOSIN MESYLATE. [Suspect]
     Active Substance: DOXAZOSIN MESYLATE
     Indication: BENIGN PROSTATIC HYPERPLASIA
     Dosage: ?          QUANTITY:1 TABLET(S);?
     Route: 048
     Dates: start: 20190215, end: 20190221
  3. COQ10 [Concomitant]
     Active Substance: UBIDECARENONE
  4. ATORVASTATIN [Concomitant]
     Active Substance: ATORVASTATIN
  5. CALAMARI OIL [Concomitant]

REACTIONS (4)
  - Fatigue [None]
  - Influenza like illness [None]
  - Ear discomfort [None]
  - Headache [None]

NARRATIVE: CASE EVENT DATE: 20190215
